FAERS Safety Report 9795354 (Version 2)
Quarter: 2014Q1

REPORT INFORMATION
  Report Type: Report from Study
  Country: US (occurrence: US)
  Receive Date: 20140103
  Receipt Date: 20140110
  Transmission Date: 20141002
  Serious: Yes (Death)
  Sender: FDA-Public Use
  Company Number: US-ROCHE-1328776

PATIENT
  Age: 16 Year
  Sex: Male

DRUGS (1)
  1. PULMOZYME [Suspect]
     Indication: PRODUCT USED FOR UNKNOWN INDICATION
     Route: 065

REACTIONS (2)
  - Respiratory failure [Fatal]
  - Bacteraemia [Fatal]
